FAERS Safety Report 25978123 (Version 1)
Quarter: 2025Q4

REPORT INFORMATION
  Report Type: Spontaneous
  Country: EU (occurrence: EU)
  Receive Date: 20251030
  Receipt Date: 20251030
  Transmission Date: 20260118
  Serious: Yes (Other)
  Sender: TEVA
  Company Number: None

PATIENT
  Age: 50 Year
  Sex: Female
  Weight: 68 kg

DRUGS (1)
  1. ZOLEDRONIC ACID [Suspect]
     Active Substance: ZOLEDRONIC ACID
     Indication: Osteopenia
     Route: 065
     Dates: start: 20250901, end: 20250901

REACTIONS (11)
  - Intervertebral disc protrusion [Not Recovered/Not Resolved]
  - Neck pain [Not Recovered/Not Resolved]
  - Myalgia [Recovered/Resolved]
  - Musculoskeletal stiffness [Not Recovered/Not Resolved]
  - Gait disturbance [Recovered/Resolved]
  - Neuralgia [Recovered/Resolved]
  - Head discomfort [Recovered/Resolved]
  - Pyrexia [Recovered/Resolved]
  - Balance disorder [Unknown]
  - Headache [Not Recovered/Not Resolved]
  - Arthralgia [Recovered/Resolved]

NARRATIVE: CASE EVENT DATE: 20250901
